FAERS Safety Report 5691128-7 (Version None)
Quarter: 2008Q2

REPORT INFORMATION
  Report Type: 
  Country: None (occurrence: None)
  Receive Date: 20080401
  Receipt Date: 20080317
  Transmission Date: 20081010
  Serious: Yes (Other)
  Sender: FDA-Public Use
  Company Number: GB-GENENTECH-258018

PATIENT
  Sex: Female
  Weight: 63.1 kg

DRUGS (1)
  1. BEVACIZUMAB [Suspect]
     Indication: NON-SMALL CELL LUNG CANCER
     Dosage: 975 MG, Q3W
     Route: 042
     Dates: start: 20080222, end: 20080312

REACTIONS (1)
  - INTRACRANIAL ANEURYSM [None]
